FAERS Safety Report 6235042-7 (Version None)
Quarter: 2009Q2

REPORT INFORMATION
  Report Type: 
  Country: None (occurrence: None)
  Receive Date: 20090618
  Receipt Date: 20090609
  Transmission Date: 20091009
  Serious: Yes (Hospitalization, Other)
  Sender: FDA-Public Use
  Company Number: US-ROCHE-621709

PATIENT
  Sex: Male
  Weight: 77.1 kg

DRUGS (4)
  1. ACCUTANE [Suspect]
     Indication: ACNE
     Route: 065
     Dates: start: 19960301, end: 19961101
  2. PRILOSEC [Concomitant]
  3. TUMS [Concomitant]
  4. PEPCID [Concomitant]

REACTIONS (13)
  - ANXIETY [None]
  - CROHN'S DISEASE [None]
  - DUODENAL ULCER [None]
  - DUODENITIS [None]
  - EPISTAXIS [None]
  - FISTULA [None]
  - GASTRITIS [None]
  - GASTROOESOPHAGEAL REFLUX DISEASE [None]
  - INFLAMMATORY BOWEL DISEASE [None]
  - INTESTINAL HAEMORRHAGE [None]
  - INTESTINAL OBSTRUCTION [None]
  - IRRITABLE BOWEL SYNDROME [None]
  - PERIRECTAL ABSCESS [None]
